FAERS Safety Report 15154864 (Version 1)
Quarter: 2018Q3

REPORT INFORMATION
  Report Type: Report from Study
  Country: DE (occurrence: DE)
  Receive Date: 20180717
  Receipt Date: 20180717
  Transmission Date: 20181010
  Serious: Yes (Hospitalization, Other)
  Sender: FDA-Public Use
  Company Number: DE-TORRENT-00008836

PATIENT
  Sex: Male
  Weight: 115 kg

DRUGS (4)
  1. SIRDALUD [Suspect]
     Active Substance: TIZANIDINE
     Indication: MUSCLE RELAXANT THERAPY
     Dosage: 3 MG, QD
     Route: 048
     Dates: start: 20020101
  2. PRAMIPEXOL [Suspect]
     Active Substance: PRAMIPEXOLE
     Indication: NEURALGIA
     Dosage: UNKNOWN
     Route: 048
     Dates: start: 20020101
  3. TRAMADOL. [Concomitant]
     Active Substance: TRAMADOL
     Indication: PAIN
     Dosage: 200 MG, QD
     Route: 048
     Dates: start: 20171001
  4. LEVODOPA [Suspect]
     Active Substance: LEVODOPA
     Indication: PRODUCT USED FOR UNKNOWN INDICATION
     Dosage: 1 DF, UNK
     Route: 048
     Dates: start: 20020101

REACTIONS (30)
  - Memory impairment [Not Recovered/Not Resolved]
  - Pulmonary oedema [Recovered/Resolved]
  - Middle insomnia [Not Recovered/Not Resolved]
  - Myocarditis [Not Recovered/Not Resolved]
  - Lung neoplasm malignant [Not Recovered/Not Resolved]
  - Nasopharyngitis [Not Recovered/Not Resolved]
  - PO2 decreased [Not Recovered/Not Resolved]
  - Fungal infection [Not Recovered/Not Resolved]
  - Sleep apnoea syndrome [Not Recovered/Not Resolved]
  - Cardiac hypertrophy [Not Recovered/Not Resolved]
  - Renal disorder [Unknown]
  - Type 2 diabetes mellitus [Not Recovered/Not Resolved]
  - Cardiac failure chronic [Not Recovered/Not Resolved]
  - Lung disorder [Not Recovered/Not Resolved]
  - Chest discomfort [Not Recovered/Not Resolved]
  - Somnolence [Not Recovered/Not Resolved]
  - Heart valve incompetence [Not Recovered/Not Resolved]
  - Chest pain [Not Recovered/Not Resolved]
  - Oedema peripheral [Recovering/Resolving]
  - Polyneuropathy [Not Recovered/Not Resolved]
  - Angina pectoris [Not Recovered/Not Resolved]
  - Ligament sprain [Not Recovered/Not Resolved]
  - Condition aggravated [Unknown]
  - Chronic kidney disease [Unknown]
  - Chronic obstructive pulmonary disease [Not Recovered/Not Resolved]
  - Limb discomfort [Not Recovered/Not Resolved]
  - Fatigue [Not Recovered/Not Resolved]
  - Dust inhalation pneumopathy [Not Recovered/Not Resolved]
  - Dyspnoea [Not Recovered/Not Resolved]
  - Ejection fraction decreased [Not Recovered/Not Resolved]

NARRATIVE: CASE EVENT DATE: 2008
